FAERS Safety Report 5162128-0 (Version None)
Quarter: 2006Q4

REPORT INFORMATION
  Report Type: 
  Country: None (occurrence: None)
  Receive Date: 20061121
  Receipt Date: 20061113
  Transmission Date: 20070319
  Serious: Yes (Death)
  Sender: FDA-Public Use
  Company Number: 2006JP004683

PATIENT
  Sex: Female

DRUGS (3)
  1. PROGRAF [Suspect]
     Indication: RHEUMATOID ARTHRITIS
     Dosage: 1 MG, UNKNOWN/D, ORAL
     Route: 048
     Dates: end: 20061008
  2. REMICADE [Suspect]
     Indication: RHEUMATOID ARTHRITIS
     Dosage: UNK, UNK, ORAL
     Route: 048
  3. METHOTREXATE(METHOTREXATE) FORMULATION UNKNONW [Suspect]
     Indication: RHEUMATOID ARTHRITIS
     Dosage: UNK, UNK, UNKNOWN

REACTIONS (2)
  - INTERSTITIAL LUNG DISEASE [None]
  - PNEUMONIA [None]
